FAERS Safety Report 4611387-9 (Version None)
Quarter: 2005Q1

REPORT INFORMATION
  Report Type: 
  Country: None (occurrence: None)
  Receive Date: 20050317
  Receipt Date: 20030911
  Transmission Date: 20050727
  Serious: Yes (Hospitalization)
  Sender: FDA-Public Use
  Company Number: PHHO2003CH11410

PATIENT
  Age: 38 Year
  Sex: Female

DRUGS (3)
  1. RAD001 [Suspect]
     Indication: RENAL TRANSPLANT
     Dosage: 3MG DAILY
     Route: 048
     Dates: start: 20030510, end: 20030921
  2. NEORAL [Suspect]
     Indication: RENAL TRANSPLANT
     Dosage: 60 MG, BID
     Route: 048
     Dates: start: 20020516
  3. PREDNISONE [Concomitant]
     Indication: RENAL TRANSPLANT
     Dosage: 50 MG, QD
     Route: 048
     Dates: start: 20020516

REACTIONS (3)
  - BLOOD CREATININE INCREASED [None]
  - DRUG TOXICITY [None]
  - NEPHROPATHY TOXIC [None]
